FAERS Safety Report 8503004-2 (Version None)
Quarter: 2012Q3

REPORT INFORMATION
  Report Type: 
  Country: None (occurrence: None)
  Receive Date: 20120711
  Receipt Date: 20120625
  Transmission Date: 20120928
  Serious: Yes (Other)
  Sender: FDA-Public Use
  Company Number: JP-UCBSA-060887

PATIENT
  Age: 42 Year
  Sex: Female

DRUGS (7)
  1. DIFLUPREDNATE [Concomitant]
  2. METOCLOPRAMIDE [Concomitant]
     Dosage: DAILY DOSE : 5 MG
     Dates: start: 20120301
  3. PREDNISOLONE [Concomitant]
     Dosage: TOTAL DAILY DOSE: 2 MG
     Dates: start: 20120426
  4. METHOTREXATE [Concomitant]
     Dosage: 16 MG/WEEK
     Dates: start: 20120201
  5. LOXOPROFEN SODIUM HYDRATE [Concomitant]
     Dosage: TOTAL DAILY DOSE:120 MG
     Dates: start: 20120130
  6. PREDNISOLONE [Concomitant]
     Dosage: TOTAL DAILY DOSE:2.5 MG
     Dates: start: 20120316, end: 20120425
  7. CIMZIA [Suspect]
     Indication: RHEUMATOID ARTHRITIS
     Route: 058
     Dates: start: 20111206

REACTIONS (1)
  - CERVIX CARCINOMA [None]
